FAERS Safety Report 5033073-6 (Version None)
Quarter: 2006Q2

REPORT INFORMATION
  Report Type: 
  Country: None (occurrence: None)
  Receive Date: 20060620
  Receipt Date: 20060601
  Transmission Date: 20061013
  Serious: No
  Sender: FDA-Public Use
  Company Number: US200606001091

PATIENT
  Age: 43 Year
  Sex: Female

DRUGS (7)
  1. CYMBALTA [Suspect]
     Indication: BIPOLAR DISORDER
     Dosage: 60 MG,
     Dates: end: 20060501
  2. CYMBALTA [Suspect]
     Indication: BIPOLAR DISORDER
     Dosage: 60 MG,
     Dates: start: 20050101
  3. LEXAPRO [Concomitant]
  4. SEROQUEL [Concomitant]
  5. KLONOPIN [Concomitant]
  6. NEURONTIN [Concomitant]
  7. GEODON [Concomitant]

REACTIONS (3)
  - ALANINE AMINOTRANSFERASE INCREASED [None]
  - ASPARTATE AMINOTRANSFERASE INCREASED [None]
  - BLOOD ALKALINE PHOSPHATASE INCREASED [None]
